FAERS Safety Report 10352710 (Version 4)
Quarter: 2019Q1

REPORT INFORMATION
  Report Type: Report from Study
  Country: None (occurrence: US)
  Receive Date: 20140730
  Receipt Date: 20190107
  Transmission Date: 20190417
  Serious: Yes (Hospitalization, Other)
  Sender: FDA-Public Use
  Company Number: US-ABBVIE-13P-163-1159097-00

PATIENT
  Age: 62 Year
  Sex: Female
  Weight: 78.54 kg

DRUGS (11)
  1. SYNTHROID [Suspect]
     Active Substance: LEVOTHYROXINE SODIUM
     Route: 048
     Dates: start: 201502, end: 201507
  2. COMPLEX VITAMIN B [Concomitant]
     Indication: DEPRESSION
  3. ADVIL [Concomitant]
     Active Substance: IBUPROFEN
     Indication: FIBROMYALGIA
  4. GENERIC LEVOTHYROXINE [Suspect]
     Active Substance: LEVOTHYROXINE
     Indication: HYPOTHYROIDISM
     Dosage: UNKNOWN MANUFACTURER
     Route: 048
     Dates: start: 2012, end: 2013
  5. OMEGA 3,6,9 [Concomitant]
     Indication: BLOOD CHOLESTEROL
  6. ADVIL [Concomitant]
     Active Substance: IBUPROFEN
     Indication: ARTHRITIS
  7. TYLENOL [Concomitant]
     Active Substance: ACETAMINOPHEN
     Indication: ARTHRITIS
  8. SYNTHROID [Suspect]
     Active Substance: LEVOTHYROXINE SODIUM
     Indication: HYPOTHYROIDISM
     Dosage: MONDAY THRU SATURDAY
     Route: 048
     Dates: start: 201309
  9. SYNTHROID [Suspect]
     Active Substance: LEVOTHYROXINE SODIUM
     Route: 048
     Dates: start: 201507
  10. TYLENOL [Concomitant]
     Active Substance: ACETAMINOPHEN
     Indication: FIBROMYALGIA
  11. ARMOUR THYROID [Suspect]
     Active Substance: THYROID, PORCINE
     Indication: HYPOTHYROIDISM
     Route: 048
     Dates: start: 2013, end: 201309

REACTIONS (25)
  - Gait disturbance [Recovered/Resolved]
  - Constipation [Not Recovered/Not Resolved]
  - Depression [Not Recovered/Not Resolved]
  - Fatigue [Not Recovered/Not Resolved]
  - Intervertebral disc degeneration [Recovered/Resolved]
  - Anger [Not Recovered/Not Resolved]
  - Weight increased [Not Recovered/Not Resolved]
  - Diarrhoea [Not Recovered/Not Resolved]
  - Nerve compression [Recovered/Resolved]
  - Arthralgia [Recovered/Resolved]
  - Blood glucose decreased [Not Recovered/Not Resolved]
  - Anxiety [Not Recovered/Not Resolved]
  - Scoliosis [Not Recovered/Not Resolved]
  - Osteoarthritis [Recovered/Resolved]
  - Palpitations [Not Recovered/Not Resolved]
  - Abnormal dreams [Not Recovered/Not Resolved]
  - Increased appetite [Not Recovered/Not Resolved]
  - Temperature intolerance [Not Recovered/Not Resolved]
  - Osteoarthritis [Not Recovered/Not Resolved]
  - Spinal fusion surgery [Recovered/Resolved]
  - Meniscus injury [Recovered/Resolved]
  - Hot flush [Not Recovered/Not Resolved]
  - Poor quality sleep [Recovered/Resolved]
  - Panic attack [Not Recovered/Not Resolved]
  - Asthenia [Not Recovered/Not Resolved]

NARRATIVE: CASE EVENT DATE: 201312
